FAERS Safety Report 11220426 (Version 1)
Quarter: 2015Q2

REPORT INFORMATION
  Report Type: Spontaneous
  Country: US (occurrence: None)
  Receive Date: 20150625
  Receipt Date: 20150625
  Transmission Date: 20150821
  Serious: Yes (Hospitalization)
  Sender: FDA-Public Use
  Company Number: None

PATIENT
  Age: 89 Year
  Sex: Male
  Weight: 85 kg

DRUGS (1)
  1. WARFARIN [Suspect]
     Active Substance: WARFARIN
     Indication: PULMONARY EMBOLISM
     Dates: start: 19910601, end: 20150310

REACTIONS (12)
  - Restless legs syndrome [None]
  - Product substitution issue [None]
  - Melaena [None]
  - Prothrombin time prolonged [None]
  - Epistaxis [None]
  - Liver function test abnormal [None]
  - Blood albumin decreased [None]
  - Anaemia [None]
  - Jaundice [None]
  - International normalised ratio increased [None]
  - Nasal dryness [None]
  - Cholangiocarcinoma [None]

NARRATIVE: CASE EVENT DATE: 20150310
